FAERS Safety Report 13718619 (Version 1)
Quarter: 2017Q3

REPORT INFORMATION
  Report Type: Spontaneous
  Country: PR (occurrence: PR)
  Receive Date: 20170705
  Receipt Date: 20170705
  Transmission Date: 20171127
  Serious: Yes (Hospitalization)
  Sender: FDA-Public Use
  Company Number: PR-PFIZER INC-2017286491

PATIENT
  Age: 66 Year
  Sex: Female

DRUGS (1)
  1. LYRICA [Suspect]
     Active Substance: PREGABALIN
     Indication: DIABETIC NEUROPATHY
     Dosage: 400 MG, UNK (WITHIN AN HOUR)

REACTIONS (3)
  - Vomiting [Unknown]
  - Dehydration [Unknown]
  - Dizziness [Unknown]
